FAERS Safety Report 9705407 (Version 1)
Quarter: 2013Q4

REPORT INFORMATION
  Report Type: Spontaneous
  Country: US (occurrence: US)
  Receive Date: 20131122
  Receipt Date: 20131122
  Transmission Date: 20140711
  Serious: Yes (Hospitalization)
  Sender: FDA-Public Use
  Company Number: US-LUNDBECK-DKLU1095460

PATIENT
  Age: 6 Year
  Sex: Female

DRUGS (12)
  1. ONFI [Suspect]
     Indication: LENNOX-GASTAUT SYNDROME
     Route: 048
     Dates: start: 201209, end: 201308
  2. ONFI [Suspect]
     Indication: EPILEPSY
  3. ONFI (ORAL SUSPENSION) [Concomitant]
     Indication: LENNOX-GASTAUT SYNDROME
     Route: 048
  4. ONFI (ORAL SUSPENSION) [Concomitant]
     Indication: EPILEPSY
     Route: 048
  5. KEPPRA [Concomitant]
     Indication: EPILEPSY
     Route: 048
  6. VALPROIC ACID [Concomitant]
     Indication: EPILEPSY
     Route: 048
  7. VALPROIC ACID [Concomitant]
     Route: 048
  8. DILANTIN [Concomitant]
     Indication: EPILEPSY
     Route: 048
  9. DILANTIN [Concomitant]
     Route: 048
  10. PREVACID [Concomitant]
     Indication: GASTROOESOPHAGEAL REFLUX DISEASE
     Route: 048
  11. CULTURELLE [Concomitant]
     Indication: PRODUCT USED FOR UNKNOWN INDICATION
     Route: 048
  12. SYNTHROID [Concomitant]
     Indication: HYPOTHYROIDISM
     Route: 048

REACTIONS (3)
  - Body temperature decreased [Recovered/Resolved]
  - Urinary tract infection [Recovered/Resolved]
  - Convulsion [Recovered/Resolved]
